FAERS Safety Report 9170652 (Version 1)
Quarter: 2013Q1

REPORT INFORMATION
  Report Type: Spontaneous
  Country: US (occurrence: None)
  Receive Date: 20130315
  Receipt Date: 20130315
  Transmission Date: 20140127
  Serious: No
  Sender: FDA-Public Use
  Company Number: None

PATIENT
  Age: 39 Year
  Sex: Female

DRUGS (2)
  1. REMODULIN UNKNOWN UNITED THERAPEUTICS CORP [Suspect]
     Indication: PULMONARY ARTERIAL HYPERTENSION
  2. VELETRI UNKNOWN ACTELION [Suspect]
     Indication: PULMONARY ARTERIAL HYPERTENSION

REACTIONS (2)
  - Pain in extremity [None]
  - Flushing [None]
